FAERS Safety Report 9840108 (Version 1)
Quarter: 2013Q4

REPORT INFORMATION
  Report Type: Spontaneous
  Country: US (occurrence: None)
  Receive Date: 20131211
  Receipt Date: 20131211
  Transmission Date: 20140711
  Serious: Yes (Other)
  Sender: FDA-Public Use
  Company Number: ALL1-2013-00373

PATIENT
  Age: 19 Year
  Sex: Female
  Weight: 81.6 kg

DRUGS (7)
  1. FIRAZYR [Suspect]
     Indication: HEREDITARY ANGIOEDEMA
     Route: 058
     Dates: start: 20120914
  2. CEFTIN (CEFUROXIME AXETIL [Concomitant]
  3. DIPHENHYDRAMINE (DIPHENHYDRAMINE) [Concomitant]
  4. SODIUM CHLORIDE [Concomitant]
  5. PREDNISONE (PREDNISONE) [Concomitant]
  6. PREDNISONE (PREDNISONE) [Concomitant]
  7. EPIPEN (EPINEPHRINE) [Concomitant]

REACTIONS (2)
  - Influenza [None]
  - Pharyngitis streptococcal [None]
